FAERS Safety Report 9538747 (Version 1)
Quarter: 2013Q2

REPORT INFORMATION
  Report Type: Spontaneous
  Country: US (occurrence: None)
  Receive Date: 20130517
  Receipt Date: 20130517
  Transmission Date: 20140414
  Serious: No
  Sender: FDA-Public Use
  Company Number: 1000044154

PATIENT
  Sex: Female

DRUGS (6)
  1. VIIBRYD [Suspect]
     Indication: DEPRESSION
     Route: 048
  2. VIIBRYD [Suspect]
     Indication: DEPRESSION
     Route: 048
  3. CRESTOR (ROSUVASTATIN CALCIUM) (ROSUVASTATIN CALCIUM) [Concomitant]
  4. BENICAR (OLMESARTAN MEDOXOMIL) (OLMESARTAN MEDOXOMIL) [Concomitant]
  5. NEXIUM (ESOMEPRAZOLE) (ESOMEPRAZOLE) [Concomitant]
  6. VISTARIL (HYDROXYZINE) (HYDROXYZINE) [Concomitant]

REACTIONS (4)
  - Nausea [None]
  - Tachyphrenia [None]
  - Nightmare [None]
  - Insomnia [None]
